FAERS Safety Report 8124950-8 (Version None)
Quarter: 2012Q1

REPORT INFORMATION
  Report Type: 
  Country: None (occurrence: None)
  Receive Date: 20120209
  Receipt Date: 20120207
  Transmission Date: 20120608
  Serious: Yes (Other)
  Sender: FDA-Public Use
  Company Number: US-ROCHE-792683

PATIENT
  Sex: Male
  Weight: 79.45 kg

DRUGS (1)
  1. ACCUTANE [Suspect]
     Indication: ACNE
     Route: 065
     Dates: start: 19980301, end: 19981231

REACTIONS (4)
  - IRRITABLE BOWEL SYNDROME [None]
  - DEPRESSION [None]
  - DIVERTICULITIS [None]
  - INFLAMMATORY BOWEL DISEASE [None]
